FAERS Safety Report 6550906-2 (Version None)
Quarter: 2010Q1

REPORT INFORMATION
  Report Type: 
  Country: None (occurrence: None)
  Receive Date: 20100125
  Receipt Date: 20091228
  Transmission Date: 20100710
  Serious: Yes (Other)
  Sender: FDA-Public Use
  Company Number: PHHY2009FR60525

PATIENT
  Sex: Female

DRUGS (5)
  1. EXFORGE [Suspect]
     Dosage: 1 DF, QD
     Route: 048
     Dates: end: 20091105
  2. LASIX [Suspect]
     Dosage: 1 DF, QD
     Route: 048
     Dates: end: 20091105
  3. IBUPROFEN [Concomitant]
     Dosage: UNK
     Route: 048
     Dates: start: 20091016, end: 20091020
  4. PRAVASTATIN [Concomitant]
  5. RANELATE DE STRONTIUM [Concomitant]

REACTIONS (3)
  - BACK PAIN [None]
  - HYPERCALCAEMIA [None]
  - METASTASES TO BONE [None]
